FAERS Safety Report 9720626 (Version 1)
Quarter: 2013Q4

REPORT INFORMATION
  Report Type: Spontaneous
  Country: IL (occurrence: IL)
  Receive Date: 20131129
  Receipt Date: 20131129
  Transmission Date: 20140711
  Serious: Yes (Hospitalization)
  Sender: FDA-Public Use
  Company Number: PHHY2013IL135980

PATIENT
  Age: 51 Year
  Sex: Male

DRUGS (1)
  1. DICLOFENAC [Suspect]
     Indication: BACK PAIN
     Dosage: 75 MG
     Route: 030

REACTIONS (9)
  - Acute coronary syndrome [Unknown]
  - Electrocardiogram ST segment elevation [Recovered/Resolved]
  - Ventricular hypokinesia [Recovered/Resolved]
  - Arteriospasm coronary [Unknown]
  - Hypotension [Recovered/Resolved]
  - Restlessness [Unknown]
  - Abdominal pain upper [Unknown]
  - Dyspnoea [Unknown]
  - Heart rate increased [Unknown]
